FAERS Safety Report 6991824-5 (Version None)
Quarter: 2010Q3

REPORT INFORMATION
  Report Type: 
  Country: None (occurrence: None)
  Receive Date: 20100917
  Receipt Date: 20100908
  Transmission Date: 20110219
  Serious: No
  Sender: FDA-Public Use
  Company Number: US-BAYER-201026973NA

PATIENT
  Age: 43 Year
  Sex: Female
  Weight: 122 kg

DRUGS (1)
  1. MIRENA [Suspect]
     Indication: MENORRHAGIA
     Dosage: FREQUENCY CONTINUOUS
     Route: 015
     Dates: start: 20100525, end: 20100527

REACTIONS (6)
  - DIZZINESS [None]
  - NAUSEA [None]
  - PALLOR [None]
  - PELVIC PAIN [None]
  - PROCEDURAL PAIN [None]
  - UNEVALUABLE EVENT [None]
